FAERS Safety Report 6144416-4 (Version None)
Quarter: 2009Q2

REPORT INFORMATION
  Report Type: 
  Country: None (occurrence: None)
  Receive Date: 20090406
  Receipt Date: 20090326
  Transmission Date: 20091009
  Serious: Yes (Hospitalization)
  Sender: FDA-Public Use
  Company Number: US-JNJFOC-20090307526

PATIENT
  Sex: Female
  Weight: 67.13 kg

DRUGS (3)
  1. REMICADE [Suspect]
     Indication: RHEUMATOID ARTHRITIS
     Route: 042
  2. PLAQUENIL [Concomitant]
     Indication: RHEUMATOID ARTHRITIS
     Dosage: DURATION 3.5 YRS.
  3. PREDNISONE [Concomitant]
     Indication: RHEUMATOID ARTHRITIS
     Dosage: DURATION 3.5 YEARS

REACTIONS (3)
  - ENDOMETRIAL CANCER STAGE IV [None]
  - METASTATIC NEOPLASM [None]
  - UTERINE LEIOMYOMA [None]
